FAERS Safety Report 5133158-X (Version None)
Quarter: 2006Q4

REPORT INFORMATION
  Report Type: 
  Country: None (occurrence: None)
  Receive Date: 20061017
  Receipt Date: 20060928
  Transmission Date: 20070319
  Serious: Yes (Death)
  Sender: FDA-Public Use
  Company Number: GB200609007358

PATIENT
  Age: 82 Year
  Sex: Male

DRUGS (5)
  1. FLUOXETINE [Suspect]
     Dosage: 20 MG, DAILY (1/D), ORAL
  2. ASPIRIN [Concomitant]
  3. ENALAPRIL MALEATE [Concomitant]
  4. LANSOPRAZOLE [Concomitant]
  5. TIOTROPIUM BROMIDE (TIOTROPIUM BROMIDE) [Concomitant]

REACTIONS (1)
  - HYPONATRAEMIA [None]
